FAERS Safety Report 4527704-4 (Version None)
Quarter: 2004Q4

REPORT INFORMATION
  Report Type: 
  Country: None (occurrence: None)
  Receive Date: 20041215
  Receipt Date: 20041208
  Transmission Date: 20050328
  Serious: Yes (Other)
  Sender: FDA-Public Use
  Company Number: US-BRISTOL-MYERS SQUIBB COMPANY-12789046

PATIENT
  Sex: Male

DRUGS (9)
  1. IFEX [Suspect]
     Indication: CARCINOMA
     Route: 042
  2. MESNA [Suspect]
     Indication: CARCINOMA
     Route: 042
  3. ETOPOSIDE [Suspect]
     Indication: CARCINOMA
     Route: 042
  4. CARBOPLATIN [Suspect]
     Dosage: AUC 5; DAY 2 ONLY
     Route: 042
  5. RITUXAN [Concomitant]
  6. NEULASTA [Concomitant]
  7. DECADRON [Concomitant]
     Indication: PREMEDICATION
     Route: 042
  8. ZOFRAN [Concomitant]
     Indication: PREMEDICATION
     Route: 042
  9. ATIVAN [Concomitant]
     Indication: PREMEDICATION

REACTIONS (8)
  - ABDOMINAL DISTENSION [None]
  - ARTHRALGIA [None]
  - DYSPNOEA [None]
  - ERYTHEMA [None]
  - FACE OEDEMA [None]
  - FLUSHING [None]
  - LYMPH NODE PAIN [None]
  - NEUTROPENIA [None]
